FAERS Safety Report 5841769-9 (Version None)
Quarter: 2008Q3

REPORT INFORMATION
  Report Type: 
  Country: None (occurrence: None)
  Receive Date: 20080731
  Receipt Date: 20080515
  Transmission Date: 20090109
  Serious: No
  Sender: FDA-Public Use
  Company Number: US200805003269

PATIENT
  Age: 55 Year
  Sex: Female
  Weight: 99.3 kg

DRUGS (6)
  1. BYETTA [Suspect]
     Indication: INSULIN-REQUIRING TYPE 2 DIABETES MELLITUS
     Dosage: 5 UG, 2/D, SUBCUTANEOUS ; 10 UG, 2/D, SUBCUTANEOUS
     Route: 058
     Dates: start: 20070402, end: 20070401
  2. BYETTA [Suspect]
     Indication: INSULIN-REQUIRING TYPE 2 DIABETES MELLITUS
     Dosage: 5 UG, 2/D, SUBCUTANEOUS ; 10 UG, 2/D, SUBCUTANEOUS
     Route: 058
     Dates: start: 20070401
  3. GLIPIZIDE [Concomitant]
  4. AVANDIA [Concomitant]
  5. METFORMIN HCL [Concomitant]
  6. LANTUS [Concomitant]

REACTIONS (5)
  - BLOOD GLUCOSE INCREASED [None]
  - DRUG INEFFECTIVE [None]
  - GLYCOSYLATED HAEMOGLOBIN INCREASED [None]
  - URINARY TRACT INFECTION [None]
  - WEIGHT DECREASED [None]
